FAERS Safety Report 23595203 (Version 1)
Quarter: 2024Q1

REPORT INFORMATION
  Report Type: Report from Study
  Country: BR (occurrence: BR)
  Receive Date: 20240305
  Receipt Date: 20240305
  Transmission Date: 20240409
  Serious: Yes (Hospitalization)
  Sender: FDA-Public Use
  Company Number: BR-AMGEN-BRASL2023210471

PATIENT
  Age: 46 Year
  Sex: Female

DRUGS (3)
  1. VECTIBIX [Suspect]
     Active Substance: PANITUMUMAB
     Indication: Colorectal cancer
     Dosage: UNK, EVERY 15 DAYS
     Route: 065
     Dates: start: 20231106
  2. LORATADINE [Concomitant]
     Active Substance: LORATADINE
     Dosage: UNK
  3. SIMETHICONE (DIMETHICONE) [Concomitant]
     Active Substance: DIMETHICONE
     Dosage: UNK

REACTIONS (9)
  - Headache [Recovered/Resolved]
  - Vomiting [Recovered/Resolved]
  - Eye disorder [Recovered/Resolved]
  - Influenza [Not Recovered/Not Resolved]
  - Illness [Recovered/Resolved]
  - Skin burning sensation [Not Recovered/Not Resolved]
  - Acne pustular [Recovering/Resolving]
  - Pain of skin [Not Recovered/Not Resolved]
  - Erythema [Recovered/Resolved]

NARRATIVE: CASE EVENT DATE: 20231101
